FAERS Safety Report 5751971-2 (Version None)
Quarter: 2008Q2

REPORT INFORMATION
  Report Type: 
  Country: None (occurrence: None)
  Receive Date: 20080529
  Receipt Date: 20080519
  Transmission Date: 20081010
  Serious: Yes (Other)
  Sender: FDA-Public Use
  Company Number: US-ROCHE-532741

PATIENT
  Age: 79 Year
  Sex: Female

DRUGS (9)
  1. BONIVA [Suspect]
     Indication: OSTEOPOROSIS
     Route: 065
     Dates: start: 20070501, end: 20070801
  2. BONIVA [Suspect]
     Route: 065
     Dates: start: 20071106
  3. CALCIUM [Concomitant]
  4. MULTIVITAMIN [Concomitant]
  5. MULTIVITAMIN [Concomitant]
  6. MULTIVITAMIN [Concomitant]
  7. MULTIVITAMIN [Concomitant]
  8. MULTIVITAMIN [Concomitant]
  9. MULTIVITAMIN [Concomitant]

REACTIONS (4)
  - BACK PAIN [None]
  - HEADACHE [None]
  - RETINAL DETACHMENT [None]
  - STOMACH DISCOMFORT [None]
